FAERS Safety Report 5490202-8 (Version None)
Quarter: 2007Q4

REPORT INFORMATION
  Report Type: 
  Country: None (occurrence: None)
  Receive Date: 20071018
  Receipt Date: 20071012
  Transmission Date: 20080405
  Serious: Yes (Other)
  Sender: FDA-Public Use
  Company Number: JP-MERCK-0710USA03173

PATIENT
  Age: 69 Year
  Sex: Female

DRUGS (1)
  1. PEPCID [Suspect]
     Route: 048
     Dates: start: 20050901, end: 20051101

REACTIONS (1)
  - APLASTIC ANAEMIA [None]
